FAERS Safety Report 12045961 (Version 1)
Quarter: 2016Q1

REPORT INFORMATION
  Report Type: Spontaneous
  Country: US (occurrence: US)
  Receive Date: 20160209
  Receipt Date: 20160209
  Transmission Date: 20160526
  Serious: Yes (Other)
  Sender: FDA-Public Use
  Company Number: US-CELGENE-USA-2015022475

PATIENT

DRUGS (6)
  1. DEXAMETHASONE. [Suspect]
     Active Substance: DEXAMETHASONE
     Indication: PLASMA CELL MYELOMA
     Route: 065
  2. ELOTUZUMAB [Suspect]
     Active Substance: ELOTUZUMAB
     Indication: PLASMA CELL MYELOMA
     Dosage: DAY 1 OF THE FIRST CYCLE, WEEKLY IN CYCLES 2 AND 3, AND BIWEEKLY IN SUBSEQUENT CYCLES.
     Route: 041
  3. ACETAMINOPHEN. [Concomitant]
     Active Substance: ACETAMINOPHEN
     Indication: PRODUCT USED FOR UNKNOWN INDICATION
     Dosage: 650-1000 MG
     Route: 065
  4. HEPARIN [Concomitant]
     Active Substance: HEPARIN SODIUM
     Indication: THROMBOSIS PROPHYLAXIS
     Route: 065
  5. REVLIMID [Suspect]
     Active Substance: LENALIDOMIDE
     Indication: PLASMA CELL MYELOMA
     Dosage: 5-25MG
     Route: 048
  6. WARFARIN [Concomitant]
     Active Substance: WARFARIN
     Indication: THROMBOSIS PROPHYLAXIS
     Route: 065

REACTIONS (37)
  - Hyperglycaemia [Unknown]
  - Syncope [Unknown]
  - Pneumonia [Unknown]
  - Blood creatinine increased [Unknown]
  - Infusion related reaction [Unknown]
  - Oedema peripheral [Unknown]
  - Muscle spasms [Unknown]
  - Malaise [Unknown]
  - Neuropathy peripheral [Unknown]
  - Eye disorder [Unknown]
  - Renal disorder [Unknown]
  - Thrombocytopenia [Unknown]
  - Nausea [Unknown]
  - Stomatitis [Unknown]
  - Agitation [Unknown]
  - Hypocalcaemia [Unknown]
  - Drug eruption [Unknown]
  - Pyrexia [Unknown]
  - Hyperhidrosis [Unknown]
  - Cardiac disorder [Unknown]
  - Dyspnoea [Unknown]
  - Neutropenia [Unknown]
  - Diarrhoea [Unknown]
  - Hypokalaemia [Unknown]
  - Soft tissue infection [Unknown]
  - Upper respiratory tract infection [Unknown]
  - Rash [Unknown]
  - Plasma cell myeloma [Unknown]
  - Pruritus [Unknown]
  - Injury [Unknown]
  - Back pain [Unknown]
  - Angiopathy [Unknown]
  - Fatigue [Unknown]
  - Anaemia [Unknown]
  - Constipation [Unknown]
  - Cough [Unknown]
  - Decreased appetite [Unknown]
